FAERS Safety Report 11371580 (Version 4)
Quarter: 2015Q4

REPORT INFORMATION
  Report Type: Spontaneous
  Country: US (occurrence: US)
  Receive Date: 20150812
  Receipt Date: 20151029
  Transmission Date: 20160304
  Serious: Yes (Death, Hospitalization)
  Sender: FDA-Public Use
  Company Number: US-BAUSCH-BL-2015-018681

PATIENT
  Age: 72 Year
  Sex: Male
  Weight: 63.11 kg

DRUGS (5)
  1. VIDAZA [Concomitant]
     Active Substance: AZACITIDINE
     Indication: MYELODYSPLASTIC SYNDROME
  2. MIRALAX [Concomitant]
     Active Substance: POLYETHYLENE GLYCOL 3350
     Indication: BOWEL MOVEMENT IRREGULARITY
     Route: 048
  3. MULTIVITAMIN [Concomitant]
     Active Substance: VITAMINS
     Indication: PRODUCT USED FOR UNKNOWN INDICATION
     Dates: end: 20150920
  4. LACTULOSE. [Concomitant]
     Active Substance: LACTULOSE
     Indication: HEPATIC CIRRHOSIS
     Route: 048
  5. XIFAXAN [Suspect]
     Active Substance: RIFAXIMIN
     Indication: HEPATIC CIRRHOSIS
     Route: 048
     Dates: start: 2015, end: 20150920

REACTIONS (5)
  - Dysphagia [Unknown]
  - Confusional state [Not Recovered/Not Resolved]
  - Asthenia [Not Recovered/Not Resolved]
  - Hepatic cirrhosis [Fatal]
  - Abdominal sepsis [Fatal]

NARRATIVE: CASE EVENT DATE: 2015
